FAERS Safety Report 9518676 (Version 1)
Quarter: 2013Q3

REPORT INFORMATION
  Report Type: Spontaneous
  Country: US (occurrence: None)
  Receive Date: 20130910
  Receipt Date: 20130910
  Transmission Date: 20140515
  Serious: Yes (Hospitalization)
  Sender: FDA-Public Use
  Company Number: 1882647

PATIENT
  Age: 21 Year
  Sex: Male

DRUGS (1)
  1. KETAMINE HYDROCHLORIDE [Suspect]
     Dosage: RESPIRATORY
     Route: 055

REACTIONS (7)
  - Cholangitis sclerosing [None]
  - Drug abuse [None]
  - Hepatobiliary disease [None]
  - Pyelonephritis acute [None]
  - Abdominal pain [None]
  - Blood alkaline phosphatase increased [None]
  - Gamma-glutamyltransferase increased [None]
